FAERS Safety Report 4830027-7 (Version None)
Quarter: 2005Q4

REPORT INFORMATION
  Report Type: 
  Country: None (occurrence: None)
  Receive Date: 20051115
  Receipt Date: 20051115
  Transmission Date: 20060501
  Serious: Yes (Life-Threatening, Hospitalization)
  Sender: FDA-Public Use
  Company Number: None

PATIENT
  Age: 54 Year
  Sex: Male
  Weight: 101.8325 kg

DRUGS (13)
  1. DICLOXACILLIN [Suspect]
     Dosage: ONE CAPSULE TWICE DAILY  ; ONE CAPSULE
     Dates: start: 20050624, end: 20050705
  2. DICLOXACILLIN [Suspect]
     Dosage: ONE CAPSULE TWICE DAILY  ; ONE CAPSULE
     Dates: start: 20050711
  3. APAP TAB [Concomitant]
  4. ATENOLOL [Concomitant]
  5. BUPROPION HCL [Concomitant]
  6. CLINDAMYCIN [Concomitant]
  7. GLYBURIDE [Concomitant]
  8. TESTOSTERONE CYP [Concomitant]
  9. LISINOPRIL [Concomitant]
  10. METFORMIN [Concomitant]
  11. PROCHLORPERAZINE [Concomitant]
  12. ROSIGLITAZONE [Concomitant]
  13. SIMVASTATIN [Concomitant]

REACTIONS (11)
  - BLOOD PRESSURE DIASTOLIC DECREASED [None]
  - BLOOD PRESSURE SYSTOLIC INCREASED [None]
  - HEART RATE INCREASED [None]
  - NAUSEA [None]
  - OXYGEN SATURATION DECREASED [None]
  - RESPIRATORY RATE INCREASED [None]
  - SHOCK [None]
  - SIMILAR REACTION ON PREVIOUS EXPOSURE TO DRUG [None]
  - TREATMENT NONCOMPLIANCE [None]
  - URTICARIA [None]
  - VOMITING [None]
